FAERS Safety Report 10493822 (Version 1)
Quarter: 2014Q4

REPORT INFORMATION
  Report Type: Report from Study
  Country: NL (occurrence: NL)
  Receive Date: 20141003
  Receipt Date: 20141003
  Transmission Date: 20150528
  Serious: Yes (Death)
  Sender: FDA-Public Use
  Company Number: NL-AMGEN-NLDSL2014075411

PATIENT
  Age: 67 Year
  Sex: Male

DRUGS (1)
  1. XGEVA [Suspect]
     Active Substance: DENOSUMAB
     Indication: PROPHYLAXIS
     Dosage: 70 MG/ML (1.7 ML), Q4WK
     Route: 058
     Dates: start: 20140612, end: 20140930

REACTIONS (1)
  - Death [Fatal]

NARRATIVE: CASE EVENT DATE: 20140930
